FAERS Safety Report 25862570 (Version 1)
Quarter: 2025Q3

REPORT INFORMATION
  Report Type: Spontaneous
  Country: US (occurrence: US)
  Receive Date: 20250930
  Receipt Date: 20250930
  Transmission Date: 20251021
  Serious: Yes (Hospitalization)
  Sender: AUROBINDO
  Company Number: US-MLMSERVICE-20250908-PI640588-00275-1

PATIENT
  Age: 50 Year
  Sex: Female

DRUGS (11)
  1. LORAZEPAM [Suspect]
     Active Substance: LORAZEPAM
     Indication: Depression
     Route: 065
  2. QUETIAPINE [Suspect]
     Active Substance: QUETIAPINE
     Indication: Anxiety
     Dosage: 25 MILLIGRAM, ONCE A DAY, AT BED TIME
     Route: 065
  3. QUETIAPINE [Suspect]
     Active Substance: QUETIAPINE
     Indication: Depression
     Route: 048
  4. QUETIAPINE [Suspect]
     Active Substance: QUETIAPINE
     Indication: Sleep disorder
  5. QUETIAPINE [Suspect]
     Active Substance: QUETIAPINE
     Indication: Behaviour disorder
  6. QUETIAPINE [Suspect]
     Active Substance: QUETIAPINE
     Indication: Agitation
  7. CARBIDOPA\LEVODOPA [Concomitant]
     Active Substance: CARBIDOPA\LEVODOPA
     Indication: Leukoencephalopathy
     Route: 065
  8. ESCITALOPRAM [Concomitant]
     Active Substance: ESCITALOPRAM OXALATE
     Indication: Anxiety
     Dosage: 20 MILLIGRAM, ONCE A DAY
     Route: 065
  9. ESCITALOPRAM [Concomitant]
     Active Substance: ESCITALOPRAM OXALATE
     Indication: Depression
  10. BUSPIRONE [Concomitant]
     Active Substance: BUSPIRONE HYDROCHLORIDE
     Indication: Anxiety
     Dosage: 15 MILLIGRAM, TWO TIMES A DAY
     Route: 065
  11. BUSPIRONE [Concomitant]
     Active Substance: BUSPIRONE HYDROCHLORIDE
     Indication: Depression

REACTIONS (2)
  - Drug ineffective [Unknown]
  - Cogwheel rigidity [Unknown]
